FAERS Safety Report 6879575-9 (Version None)
Quarter: 2010Q3

REPORT INFORMATION
  Report Type: 
  Country: None (occurrence: None)
  Receive Date: 20100728
  Receipt Date: 20100715
  Transmission Date: 20110219
  Serious: Yes (Other)
  Sender: FDA-Public Use
  Company Number: AT-PFIZER INC-2010088271

PATIENT
  Sex: Female

DRUGS (5)
  1. SUNITINIB MALATE [Suspect]
     Indication: RENAL CANCER METASTATIC
     Dosage: 50 MG, UNK
     Route: 048
     Dates: start: 20060601
  2. MARCUMAR [Concomitant]
     Indication: ANTICOAGULATION DRUG LEVEL THERAPEUTIC
     Dosage: UNK
     Dates: start: 20041101
  3. LEVOTHYROXINE SODIUM [Concomitant]
     Dosage: 75 MG, UNK
  4. ENALAPRIL MALEATE AND HYDROCHLOROTHIAZIDE [Concomitant]
  5. METOPROLOL [Concomitant]

REACTIONS (15)
  - DECREASED APPETITE [None]
  - DIARRHOEA [None]
  - DYSGEUSIA [None]
  - HAEMORRHAGIC DIATHESIS [None]
  - HYPERTENSION [None]
  - HYPOTHYROIDISM [None]
  - MUCOSAL INFLAMMATION [None]
  - PAIN [None]
  - PALMAR-PLANTAR ERYTHRODYSAESTHESIA SYNDROME [None]
  - PERFORMANCE STATUS DECREASED [None]
  - PNEUMONIA [None]
  - SKIN DISCOLOURATION [None]
  - SLEEP DISORDER [None]
  - WEIGHT DECREASED [None]
  - YELLOW SKIN [None]
